FAERS Safety Report 8306818-7 (Version None)
Quarter: 2012Q2

REPORT INFORMATION
  Report Type: 
  Country: None (occurrence: None)
  Receive Date: 20120424
  Receipt Date: 20120418
  Transmission Date: 20120825
  Serious: No
  Sender: FDA-Public Use
  Company Number: US-PFIZER INC-2012096950

PATIENT
  Sex: Male

DRUGS (1)
  1. VFEND [Suspect]
     Dosage: UNK

REACTIONS (4)
  - RASH [None]
  - NECK PAIN [None]
  - LOCAL SWELLING [None]
  - MUSCLE TIGHTNESS [None]
